FAERS Safety Report 17184013 (Version 1)
Quarter: 2019Q4

REPORT INFORMATION
  Report Type: Report from Study
  Country: US (occurrence: US)
  Receive Date: 20191220
  Receipt Date: 20191220
  Transmission Date: 20200122
  Serious: Yes (Death, Hospitalization)
  Sender: FDA-Public Use
  Company Number: US-ZYDUS-044933

PATIENT
  Age: 31 Year
  Sex: Male

DRUGS (1)
  1. DILTIAZEM. [Suspect]
     Active Substance: DILTIAZEM
     Indication: PRODUCT USED FOR UNKNOWN INDICATION
     Route: 065

REACTIONS (9)
  - Hypotension [Unknown]
  - Coagulopathy [Unknown]
  - Acute lung injury [Unknown]
  - Bradycardia [Unknown]
  - Hepatotoxicity [Unknown]
  - Blister [Unknown]
  - Pneumonia aspiration [Unknown]
  - Atrioventricular block [Unknown]
  - Toxicity to various agents [Fatal]
